FAERS Safety Report 10696581 (Version 1)
Quarter: 2015Q1

REPORT INFORMATION
  Report Type: Spontaneous
  Country: CH (occurrence: CH)
  Receive Date: 20150107
  Receipt Date: 20150107
  Transmission Date: 20150721
  Serious: Yes (Hospitalization, Other)
  Sender: FDA-Public Use
  Company Number: CH-GLAXOSMITHKLINE-CH2014043840

PATIENT

DRUGS (27)
  1. ATARAX [Concomitant]
     Active Substance: HYDROXYZINE\HYDROXYZINE HYDROCHLORIDE
     Dosage: 25 MG, QD
     Route: 048
     Dates: start: 20140417
  2. EUTHYROX [Concomitant]
     Active Substance: LEVOTHYROXINE SODIUM
     Dosage: 0.075 MG, QD
     Route: 048
     Dates: start: 20140219
  3. BALDRIAN [Concomitant]
     Dosage: 10 DF, BID
     Route: 048
     Dates: start: 20140506
  4. POTASSIUM [Concomitant]
     Active Substance: POTASSIUM
     Dosage: 15 MMOL, QD
     Route: 048
     Dates: start: 20140515
  5. NOVALGIN [Concomitant]
     Active Substance: METAMIZOLE SODIUM
     Dosage: 375 MG, QID
     Route: 048
     Dates: start: 20140425
  6. TAZOBAC [Concomitant]
     Active Substance: PIPERACILLIN SODIUM\TAZOBACTAM SODIUM
     Dosage: 300 MG, TID
     Route: 048
     Dates: start: 20140520
  7. VFEND [Concomitant]
     Active Substance: VORICONAZOLE
     Dosage: 325 MG, BID
     Route: 048
     Dates: start: 20140413
  8. AMPHO MORONAL [Concomitant]
     Dosage: 300 MG, TID
     Route: 048
     Dates: start: 20140413
  9. MAGNESIOCARD [Concomitant]
     Active Substance: MAGNESIUM ASPARTATE HYDROCHLORIDE
     Dosage: 5 MMOL, QD
     Route: 048
     Dates: start: 20140515
  10. SANDIMMUNE [Concomitant]
     Active Substance: CYCLOSPORINE
     Dosage: 120 MG, BID
     Route: 048
     Dates: start: 20140506
  11. CANNABIS SATIVA SUBSP. SATIVA FLOWERING TOP [Concomitant]
     Active Substance: CANNABIS SATIVA SUBSP. SATIVA FLOWERING TOP
     Dosage: 2 GTT, BID
     Route: 048
     Dates: start: 20140516
  12. DUROGESIC [Concomitant]
     Active Substance: FENTANYL
     Dosage: 12 ?G, QOD
     Route: 003
     Dates: start: 20140528
  13. CALCIUM CARBONATE. [Concomitant]
     Active Substance: CALCIUM CARBONATE
     Route: 048
     Dates: start: 20140413
  14. BUDENOFALK [Concomitant]
     Active Substance: BUDESONIDE
     Dosage: 3 MG, TID
     Route: 048
     Dates: start: 20140217
  15. PENTACARINAT [Concomitant]
     Active Substance: PENTAMIDINE ISETHIONATE
     Route: 055
     Dates: start: 20140502
  16. URSOFALK [Concomitant]
     Active Substance: URSODIOL
     Dosage: 300 MG, BID
     Route: 048
     Dates: start: 20140312
  17. OCTAGAM IMMUNE GLOBULIN (HUMAN) [Concomitant]
     Active Substance: HUMAN IMMUNOGLOBULIN G
     Dosage: ONCE EVERY TWO WEEKS
     Route: 042
     Dates: start: 20140515
  18. MOTILIUM [Concomitant]
     Active Substance: DOMPERIDONE
     Dosage: 5 MG, QID
     Route: 048
     Dates: start: 20140506
  19. VI-DE 3 [Concomitant]
     Dosage: 0.22 ML, QD
     Route: 048
     Dates: start: 20140413
  20. ACTIQ [Concomitant]
     Active Substance: FENTANYL CITRATE
     Dosage: 200 ?G, QD
     Route: 048
     Dates: start: 20140506
  21. ANTRAMUPS [Concomitant]
     Active Substance: OMEPRAZOLE
     Dosage: 10 MG, QD
     Route: 048
     Dates: start: 20140506
  22. VENTOLIN [Concomitant]
     Active Substance: ALBUTEROL SULFATE
     Dosage: ONCE EVERY TWO WEEKS
     Route: 055
     Dates: start: 20140425
  23. ZOFRAN [Suspect]
     Active Substance: ONDANSETRON HYDROCHLORIDE
     Indication: PRODUCT USED FOR UNKNOWN INDICATION
     Dosage: 6 MG, UNK
     Route: 048
     Dates: start: 20140506
  24. ADALAT [Concomitant]
     Active Substance: NIFEDIPINE
     Dosage: 20 MG, QD
     Route: 048
     Dates: start: 20140514
  25. BUSCOPAN [Concomitant]
     Active Substance: BUTYLSCOPOLAMINE BROMIDE
     Dosage: 10 MG, BID
     Route: 048
     Dates: start: 20140422
  26. SOLUPRED [Concomitant]
     Active Substance: PREDNISOLONE
     Dosage: 5 MG, BID
     Route: 048
     Dates: start: 20140506
  27. VALCYTE [Concomitant]
     Active Substance: VALGANCICLOVIR HYDROCHLORIDE
     Dosage: 450 MG, BID
     Route: 048
     Dates: start: 20140528

REACTIONS (1)
  - Depressed level of consciousness [Recovered/Resolved]

NARRATIVE: CASE EVENT DATE: 20140601
